FAERS Safety Report 15676826 (Version 2)
Quarter: 2018Q4

REPORT INFORMATION
  Report Type: Spontaneous
  Country: US (occurrence: US)
  Receive Date: 20181130
  Receipt Date: 20181207
  Transmission Date: 20190205
  Serious: No
  Sender: FDA-Public Use
  Company Number: US-PFIZER INC-2018485275

PATIENT
  Age: 73 Year
  Sex: Female

DRUGS (1)
  1. XELJANZ [Suspect]
     Active Substance: TOFACITINIB CITRATE
     Dosage: 5 MG
     Dates: start: 20180830

REACTIONS (5)
  - Musculoskeletal discomfort [Not Recovered/Not Resolved]
  - Condition aggravated [Not Recovered/Not Resolved]
  - Musculoskeletal pain [Unknown]
  - Arthralgia [Unknown]
  - Joint stiffness [Not Recovered/Not Resolved]
